FAERS Safety Report 14317951 (Version 4)
Quarter: 2018Q1

REPORT INFORMATION
  Report Type: Spontaneous
  Country: JP (occurrence: JP)
  Receive Date: 20171222
  Receipt Date: 20180322
  Transmission Date: 20180509
  Serious: Yes (Congenital Anomaly)
  Sender: FDA-Public Use
  Company Number: JP-BAYER-2017-242642

PATIENT
  Age: 0 Year
  Sex: Male

DRUGS (9)
  1. PREDNISOLONE. [Concomitant]
     Active Substance: PREDNISOLONE
     Dosage: DAILY DOSE 5 MG
  2. PREDONINE [Suspect]
     Active Substance: PREDNISOLONE
     Indication: NECROTISING RETINITIS
     Dosage: DAILY DOSE 25 MG
     Dates: start: 20170507, end: 20170727
  3. BAYASPIRIN 100 MG [Suspect]
     Active Substance: ASPIRIN
     Indication: NECROTISING RETINITIS
     Dosage: DAILY DOSE 100 MG
     Dates: start: 20170422, end: 20170519
  4. VALTREX [Suspect]
     Active Substance: VALACYCLOVIR HYDROCHLORIDE
     Indication: NECROTISING RETINITIS
     Dosage: DAILY DOSE 3000 MG
     Dates: start: 20170506, end: 20170727
  5. PREDNISOLONE. [Concomitant]
     Active Substance: PREDNISOLONE
     Dosage: DAILY DOSE 20 MG
  6. SOL-MELCORT [Concomitant]
     Active Substance: METHYLPREDNISOLONE SODIUM SUCCINATE
     Indication: NECROTISING RETINITIS
     Dosage: DAILY DOSE 50 MG
     Dates: start: 20170422, end: 20170425
  7. ACICLOVIR [Concomitant]
     Active Substance: ACYCLOVIR
     Indication: NECROTISING RETINITIS
     Dosage: DAILY DOSE 1500 MG
     Dates: start: 20170422, end: 20170505
  8. PREDONINE [Suspect]
     Active Substance: PREDNISOLONE
     Indication: NECROTISING RETINITIS
     Dosage: DAILY DOSE 60 MG
     Dates: start: 20170426, end: 20170506
  9. FAMOTIDINE. [Concomitant]
     Active Substance: FAMOTIDINE
     Dosage: DAILY DOSE 40 MG
     Dates: start: 20170422, end: 20170727

REACTIONS (4)
  - Foetal growth restriction [Not Recovered/Not Resolved]
  - Foetal exposure during pregnancy [None]
  - Premature baby [None]
  - Low birth weight baby [None]

NARRATIVE: CASE EVENT DATE: 20170805
